FAERS Safety Report 6913471-3 (Version None)
Quarter: 2010Q3

REPORT INFORMATION
  Report Type: 
  Country: None (occurrence: None)
  Receive Date: 20100804
  Receipt Date: 20100804
  Transmission Date: 20110219
  Serious: Yes (Life-Threatening, Hospitalization)
  Sender: FDA-Public Use
  Company Number: None

PATIENT
  Age: 65 Year
  Sex: Female
  Weight: 74.8435 kg

DRUGS (3)
  1. TEKTURNA [Suspect]
     Indication: HYPERTENSION
     Dosage: 150MG ? 1-DAY MOUTH
     Route: 048
     Dates: start: 20100716
  2. TEKTURNA [Suspect]
     Indication: HYPERTENSION
     Dosage: 150MG ? 1-DAY MOUTH
     Route: 048
     Dates: start: 20100717
  3. TEKTURNA [Suspect]
     Indication: HYPERTENSION
     Dosage: 150MG ? 1-DAY MOUTH
     Route: 048
     Dates: start: 20100718

REACTIONS (3)
  - BLOOD PRESSURE INCREASED [None]
  - FEAR OF DISEASE [None]
  - HEART RATE INCREASED [None]
